FAERS Safety Report 23089896 (Version 1)
Quarter: 2023Q4

REPORT INFORMATION
  Report Type: Spontaneous
  Country: CA (occurrence: CA)
  Receive Date: 20231020
  Receipt Date: 20231020
  Transmission Date: 20240109
  Serious: Yes (Life-Threatening, Hospitalization, Other)
  Sender: FDA-Public Use
  Company Number: CA-SA-2016SA154106

PATIENT
  Age: 77 Year
  Sex: Female

DRUGS (61)
  1. LACTULOSE [Suspect]
     Active Substance: LACTULOSE
     Indication: Constipation
     Dosage: DOSE DESCRIPTION : 15 ML, QD
     Route: 048
  2. LACTULOSE [Suspect]
     Active Substance: LACTULOSE
     Indication: Thyroid disorder
     Dosage: DOSE DESCRIPTION : UNK
     Route: 048
  3. LACTULOSE [Suspect]
     Active Substance: LACTULOSE
     Indication: Radioactive iodine therapy
     Dosage: DOSE DESCRIPTION : 1 IN 1 AS REQUIRED (15 ML)
     Route: 048
  4. LACTULOSE [Suspect]
     Active Substance: LACTULOSE
     Dosage: DOSE DESCRIPTION : ORAL LIQUID FORM
     Route: 048
  5. LACTULOSE [Suspect]
     Active Substance: LACTULOSE
     Route: 065
  6. LACTULOSE [Suspect]
     Active Substance: LACTULOSE
     Route: 065
  7. LACTULOSE [Suspect]
     Active Substance: LACTULOSE
     Route: 065
  8. BISACODYL [Suspect]
     Active Substance: BISACODYL
     Indication: Constipation
     Dosage: DOSE DESCRIPTION : 2 DF, PRN
     Route: 065
  9. BISACODYL [Suspect]
     Active Substance: BISACODYL
     Dosage: DOSE DESCRIPTION : 1 DF, QD
     Route: 065
  10. BISACODYL [Suspect]
     Active Substance: BISACODYL
     Dosage: DOSE DESCRIPTION : 2 DF, QD
     Route: 065
  11. BISACODYL [Suspect]
     Active Substance: BISACODYL
     Dosage: DOSE DESCRIPTION : 650 MG, QD
     Route: 065
  12. BISACODYL [Suspect]
     Active Substance: BISACODYL
     Dosage: DOSE DESCRIPTION : UNK, QD
     Route: 048
  13. MAGNESIUM HYDROXIDE [Suspect]
     Active Substance: MAGNESIUM HYDROXIDE
     Indication: Constipation
     Dosage: DOSE DESCRIPTION : 622 MG, QD
     Route: 065
  14. MAGNESIUM HYDROXIDE [Suspect]
     Active Substance: MAGNESIUM HYDROXIDE
     Dosage: DOSE DESCRIPTION : 2 DF, QD
     Route: 065
  15. MAGNESIUM HYDROXIDE [Suspect]
     Active Substance: MAGNESIUM HYDROXIDE
     Dosage: DOSE DESCRIPTION : 2 DF, BID
     Route: 065
  16. MAGNESIUM HYDROXIDE [Suspect]
     Active Substance: MAGNESIUM HYDROXIDE
     Dosage: DOSE DESCRIPTION : UNK, QOD
     Route: 065
  17. MAGNESIUM HYDROXIDE [Suspect]
     Active Substance: MAGNESIUM HYDROXIDE
     Dosage: DOSE DESCRIPTION : 1244 MG, BID
     Route: 065
  18. MAGNESIUM HYDROXIDE [Suspect]
     Active Substance: MAGNESIUM HYDROXIDE
     Dosage: DOSE DESCRIPTION : 2 DOSAGE FORMS (2 DOSAGE FORMS,1 IN 24 HR)
     Route: 065
  19. MAGNESIUM HYDROXIDE [Suspect]
     Active Substance: MAGNESIUM HYDROXIDE
     Dosage: DOSE DESCRIPTION : 2 DOSAGE FORMS (1 DOSAGE FORMS,1 IN 12 HR)
     Route: 065
  20. MAGNESIUM HYDROXIDE [Suspect]
     Active Substance: MAGNESIUM HYDROXIDE
     Dosage: DOSE DESCRIPTION : 1 DF, QD
     Route: 065
  21. MAGNESIUM HYDROXIDE [Suspect]
     Active Substance: MAGNESIUM HYDROXIDE
     Dosage: DOSE DESCRIPTION : 622 MG,1 IN 12 HR
     Route: 065
  22. MAGNESIUM HYDROXIDE [Suspect]
     Active Substance: MAGNESIUM HYDROXIDE
     Dosage: DOSE DESCRIPTION : 1 IN 1 DAY
     Route: 065
  23. MAGNESIUM HYDROXIDE [Suspect]
     Active Substance: MAGNESIUM HYDROXIDE
     Route: 065
  24. MAGNESIUM HYDROXIDE [Suspect]
     Active Substance: MAGNESIUM HYDROXIDE
     Route: 065
  25. ACETAMINOPHEN [Suspect]
     Active Substance: ACETAMINOPHEN
     Indication: Fibromyalgia
     Dosage: DOSE DESCRIPTION : 650 MG, QD
     Route: 065
  26. ACETAMINOPHEN [Suspect]
     Active Substance: ACETAMINOPHEN
     Indication: Pain
     Dosage: DOSE DESCRIPTION : 650 MG, EVERY 4-6 H AS NEEDED
     Route: 065
  27. ROSUVASTATIN CALCIUM [Suspect]
     Active Substance: ROSUVASTATIN CALCIUM
     Indication: Angina pectoris
     Dosage: DOSE DESCRIPTION : 20 MG,BID
     Route: 048
     Dates: start: 2008
  28. ROSUVASTATIN CALCIUM [Suspect]
     Active Substance: ROSUVASTATIN CALCIUM
     Indication: Chest pain
     Dosage: DOSE DESCRIPTION : 10 MG, QD
     Route: 065
  29. ROSUVASTATIN CALCIUM [Suspect]
     Active Substance: ROSUVASTATIN CALCIUM
     Indication: Hypertension
     Dosage: DOSE DESCRIPTION : 400 MG, BID
     Route: 065
  30. ROSUVASTATIN CALCIUM [Suspect]
     Active Substance: ROSUVASTATIN CALCIUM
     Indication: Insomnia
     Dosage: DOSE DESCRIPTION : 40 MG, BID
     Route: 065
  31. ROSUVASTATIN CALCIUM [Suspect]
     Active Substance: ROSUVASTATIN CALCIUM
     Indication: Cerebrovascular accident
     Dosage: DOSE DESCRIPTION : 1.666 MILLIGRAM(S) (20 MILLIGRAM(S)),1 IN 12 DAY
     Route: 065
  32. ROSUVASTATIN CALCIUM [Suspect]
     Active Substance: ROSUVASTATIN CALCIUM
     Indication: Coronary artery disease
     Route: 065
  33. ROSUVASTATIN CALCIUM [Suspect]
     Active Substance: ROSUVASTATIN CALCIUM
     Indication: Chronic obstructive pulmonary disease
     Dosage: DOSE DESCRIPTION : 20 MG, TID
     Route: 065
  34. SODIUM PICOSULFATE [Suspect]
     Active Substance: SODIUM PICOSULFATE
     Indication: Constipation
     Dosage: DOSE DESCRIPTION : 2 DF, Q24D
     Route: 065
  35. SODIUM PICOSULFATE [Suspect]
     Active Substance: SODIUM PICOSULFATE
     Dosage: DOSE DESCRIPTION : 2 DF
     Route: 065
  36. CHONDROITIN SULFATE (BOVINE)\GLUCOSAMINE SULFATE [Suspect]
     Active Substance: CHONDROITIN SULFATE (BOVINE)\GLUCOSAMINE SULFATE
     Indication: Product used for unknown indication
     Dosage: DOSE DESCRIPTION : UNK
     Route: 065
  37. OMEPRAZOLE [Suspect]
     Active Substance: OMEPRAZOLE
     Indication: Duodenal ulcer
     Dosage: DOSE DESCRIPTION : 20 MG, QD
     Route: 048
  38. OMEPRAZOLE [Suspect]
     Active Substance: OMEPRAZOLE
     Indication: Angina pectoris
     Route: 065
  39. OMEPRAZOLE [Suspect]
     Active Substance: OMEPRAZOLE
     Indication: Small intestine carcinoma
  40. OMEPRAZOLE [Suspect]
     Active Substance: OMEPRAZOLE
     Indication: Chest pain
  41. OMEPRAZOLE [Suspect]
     Active Substance: OMEPRAZOLE
     Indication: Hypertension
  42. OMEPRAZOLE [Suspect]
     Active Substance: OMEPRAZOLE
     Indication: Coronary artery disease
  43. ASPIRIN [Suspect]
     Active Substance: ASPIRIN
     Indication: Angina pectoris
     Dosage: DOSE DESCRIPTION : 200/25 MG TWICE DAILY
     Route: 065
     Dates: start: 2008
  44. ASPIRIN [Suspect]
     Active Substance: ASPIRIN
     Indication: Cerebrovascular accident
  45. ASPIRIN [Suspect]
     Active Substance: ASPIRIN
     Indication: Coronary artery disease
  46. ASPIRIN [Suspect]
     Active Substance: ASPIRIN
     Indication: Hypertension
  47. DROTAVERINE HYDROCHLORIDE [Suspect]
     Active Substance: DROTAVERINE HYDROCHLORIDE
     Dosage: DOSE DESCRIPTION : UNK
     Route: 065
  48. AMBROXOL HYDROCHLORIDE [Suspect]
     Active Substance: AMBROXOL HYDROCHLORIDE
     Dosage: DOSE DESCRIPTION : UNK
     Route: 065
  49. AMBROXOL HYDROCHLORIDE [Suspect]
     Active Substance: AMBROXOL HYDROCHLORIDE
     Route: 065
  50. DOCUSATE SODIUM [Suspect]
     Active Substance: DOCUSATE SODIUM
     Indication: Constipation
     Dosage: DOSE DESCRIPTION : UNK
     Route: 065
  51. ACETAMINOPHEN\CAFFEINE [Suspect]
     Active Substance: ACETAMINOPHEN\CAFFEINE
     Indication: Cerebrovascular accident
     Dosage: DOSE DESCRIPTION : 50 MG, QD
     Route: 065
  52. ACETAMINOPHEN\CAFFEINE [Suspect]
     Active Substance: ACETAMINOPHEN\CAFFEINE
     Indication: Pain
     Dosage: DOSE DESCRIPTION : 60 MG, QD
     Route: 065
  53. ACETAMINOPHEN\CAFFEINE [Suspect]
     Active Substance: ACETAMINOPHEN\CAFFEINE
     Indication: Angina pectoris
     Dosage: DOSE DESCRIPTION : 650 MG, QD
     Route: 065
  54. ACETAMINOPHEN\CAFFEINE [Suspect]
     Active Substance: ACETAMINOPHEN\CAFFEINE
     Indication: Chest pain
  55. ACETAMINOPHEN\CAFFEINE [Suspect]
     Active Substance: ACETAMINOPHEN\CAFFEINE
     Indication: Chronic obstructive pulmonary disease
  56. ACETAMINOPHEN\CAFFEINE [Suspect]
     Active Substance: ACETAMINOPHEN\CAFFEINE
     Indication: Hypertension
  57. ACETAMINOPHEN\CAFFEINE [Suspect]
     Active Substance: ACETAMINOPHEN\CAFFEINE
     Indication: Coronary artery disease
  58. ACETAMINOPHEN\CAFFEINE [Suspect]
     Active Substance: ACETAMINOPHEN\CAFFEINE
     Indication: Radioactive iodine therapy
  59. CALCIUM CARBONATE [Suspect]
     Active Substance: CALCIUM CARBONATE
     Indication: Product used for unknown indication
     Dosage: DOSE DESCRIPTION : UNK
     Route: 065
  60. ACETAMINOPHEN\ASPIRIN\CAFFEINE [Suspect]
     Active Substance: ACETAMINOPHEN\ASPIRIN\CAFFEINE
     Indication: Product used for unknown indication
     Dosage: DOSE DESCRIPTION : UNK
     Route: 065
  61. CRANBERRY [Suspect]
     Active Substance: CRANBERRY
     Indication: Bladder disorder
     Dosage: DOSE DESCRIPTION : 500 MG, Q8H
     Route: 065

REACTIONS (1)
  - Cognitive disorder [Recovered/Resolved]
